FAERS Safety Report 5696946-7 (Version None)
Quarter: 2008Q2

REPORT INFORMATION
  Report Type: 
  Country: None (occurrence: None)
  Receive Date: 20080408
  Receipt Date: 20070321
  Transmission Date: 20081010
  Serious: Yes (Other)
  Sender: FDA-Public Use
  Company Number: US-BAYER-US-2007-004611

PATIENT
  Age: 29 Year
  Sex: Female
  Weight: 75 kg

DRUGS (3)
  1. YASMIN [Suspect]
     Indication: ABDOMINAL PAIN
     Route: 048
     Dates: start: 20060101
  2. ELAVIL [Concomitant]
     Indication: MULTIPLE ALLERGIES
     Route: 048
     Dates: start: 20060101
  3. DIHYDROERGOTAMINE [Concomitant]
     Indication: MIGRAINE

REACTIONS (2)
  - CHOLELITHIASIS [None]
  - METRORRHAGIA [None]
